FAERS Safety Report 25396333 (Version 3)
Quarter: 2025Q2

REPORT INFORMATION
  Report Type: Spontaneous
  Country: JP (occurrence: JP)
  Receive Date: 20250604
  Receipt Date: 20250630
  Transmission Date: 20250717
  Serious: Yes (Life-Threatening)
  Sender: PFIZER
  Company Number: JP-PFIZER INC-202500114272

PATIENT
  Age: 63 Year
  Sex: Female
  Weight: 46.7 kg

DRUGS (5)
  1. INLYTA [Suspect]
     Active Substance: AXITINIB
     Indication: Renal cell carcinoma
     Dosage: 5 MG, 2X/DAY
     Route: 048
     Dates: start: 20190807, end: 20250606
  2. LEVOTHYROXINE SODIUM [Concomitant]
     Active Substance: LEVOTHYROXINE SODIUM
     Indication: Hypothyroidism
     Dosage: 25 MG, 1X/DAY
  3. URSO 1A PHARMA [Concomitant]
     Indication: Hepatic function abnormal
     Dosage: 200 MG, 3X/DAY
  4. REBAMIPIDE [Concomitant]
     Active Substance: REBAMIPIDE
     Indication: Abdominal discomfort
     Dosage: 100 MG, 3X/DAY
  5. KIKYOSEKKO [Concomitant]
     Dosage: 2 G, 3X/DAY

REACTIONS (2)
  - Second primary malignancy [Recovering/Resolving]
  - Chronic myeloid leukaemia [Recovering/Resolving]

NARRATIVE: CASE EVENT DATE: 20250424
